FAERS Safety Report 6500094-3 (Version None)
Quarter: 2009Q4

REPORT INFORMATION
  Report Type: 
  Country: None (occurrence: None)
  Receive Date: 20091216
  Receipt Date: 20091207
  Transmission Date: 20100525
  Serious: Yes (Hospitalization)
  Sender: FDA-Public Use
  Company Number: US-WYE-H12593009

PATIENT
  Sex: Male

DRUGS (2)
  1. PROTONIX [Suspect]
     Dosage: UNKNOWN
  2. LANTUS [Suspect]
     Dosage: 1000 IU/ML ONCE
     Route: 058
     Dates: start: 20091024, end: 20091024

REACTIONS (2)
  - BLOOD GLUCOSE INCREASED [None]
  - WRONG DRUG ADMINISTERED [None]
